FAERS Safety Report 20030122 (Version 1)
Quarter: 2021Q4

REPORT INFORMATION
  Report Type: Report from Study
  Country: EG (occurrence: EG)
  Receive Date: 20211103
  Receipt Date: 20211103
  Transmission Date: 20220303
  Serious: Yes (Other)
  Sender: FDA-Public Use
  Company Number: EG-NOVARTISPH-NVSC2021EG246106

PATIENT
  Sex: Female

DRUGS (1)
  1. GLIVEC [Suspect]
     Active Substance: IMATINIB MESYLATE
     Indication: Chronic myeloid leukaemia
     Dosage: 400 MG, QD (STARTED: 6/7 YEARS AGO AND STOPPED: 2 YEARS AGO)
     Route: 048

REACTIONS (3)
  - White blood cell count increased [Recovered/Resolved]
  - Weight decreased [Recovered/Resolved]
  - Haemoglobin decreased [Recovered/Resolved]
